FAERS Safety Report 10166888 (Version 1)
Quarter: 2014Q2

REPORT INFORMATION
  Report Type: Spontaneous
  Country: AR (occurrence: None)
  Receive Date: 20140508
  Receipt Date: 20140508
  Transmission Date: 20141212
  Serious: Yes (Other)
  Sender: FDA-Public Use
  Company Number: VAL_03106_2014

PATIENT
  Age: 44 Year
  Sex: Female

DRUGS (1)
  1. METHYLERGOMETRINE MALEATE (BASOFORTINA - METHYLERGOMETRINE MALEATE) [Suspect]
     Indication: ECTOPIC PREGNANCY
     Route: 048
     Dates: start: 2000

REACTIONS (3)
  - Polyp [None]
  - Haemorrhage [None]
  - Amenorrhoea [None]
